FAERS Safety Report 7020839-6 (Version None)
Quarter: 2010Q3

REPORT INFORMATION
  Report Type: 
  Country: None (occurrence: None)
  Receive Date: 20100929
  Receipt Date: 20100923
  Transmission Date: 20110219
  Serious: Yes (Hospitalization)
  Sender: FDA-Public Use
  Company Number: CA-BAYER-201022275NA

PATIENT
  Age: 69 Year
  Sex: Male

DRUGS (10)
  1. SORAFENIB [Suspect]
     Indication: HEPATIC NEOPLASM MALIGNANT
     Route: 048
  2. ERLOTINIB HYDROCHLORIDE [Suspect]
     Indication: HEPATIC NEOPLASM MALIGNANT
  3. VALSARTAN [Concomitant]
     Dosage: TOTAL DAILY DOSE: 80 MG  UNIT DOSE: 80 MG
     Route: 048
     Dates: start: 20100511
  4. DIMENHYDRINATE [Concomitant]
     Dosage: UNIT DOSE: 50 MG
     Route: 048
     Dates: start: 20100511
  5. LORAZEPAM [Concomitant]
     Dosage: TOTAL DAILY DOSE: 1 MG  UNIT DOSE: 1 MG
     Route: 048
     Dates: start: 20100511
  6. FUROSEMIDE [Concomitant]
     Dosage: TOTAL DAILY DOSE: 20 MG  UNIT DOSE: 20 MG
     Route: 048
     Dates: start: 20100511
  7. ACETAMINOPHEN [Concomitant]
     Dosage: UNIT DOSE: 325 MG
     Route: 048
     Dates: start: 20100511
  8. NADOLOL [Concomitant]
     Dosage: TOTAL DAILY DOSE: 40 MG  UNIT DOSE: 80 MG
     Route: 048
     Dates: start: 20100511
  9. PANTOPRAZOLE [Concomitant]
     Dosage: TOTAL DAILY DOSE: 40 MG  UNIT DOSE: 40 MG
     Route: 048
     Dates: start: 20100511
  10. CALCIUM CARBONATE + VIT D3 [Concomitant]
     Dosage: 500 MG - 400 U QD WITH BREAKFAST
     Route: 048
     Dates: start: 20100511

REACTIONS (3)
  - BLOOD BILIRUBIN INCREASED [None]
  - DIARRHOEA [None]
  - ENCEPHALOPATHY [None]
